FAERS Safety Report 24262169 (Version 1)
Quarter: 2024Q3

REPORT INFORMATION
  Report Type: Spontaneous
  Country: US (occurrence: US)
  Receive Date: 20240829
  Receipt Date: 20240829
  Transmission Date: 20241016
  Serious: No
  Sender: PADAGIS
  Company Number: US-PADAGIS-2024PAD01373

PATIENT

DRUGS (1)
  1. PROMETHAZINE HYDROCHLORIDE [Suspect]
     Active Substance: PROMETHAZINE HYDROCHLORIDE
     Indication: Nausea
     Dosage: UNK
     Route: 054

REACTIONS (5)
  - Sleep disorder [Unknown]
  - Bloody discharge [Unknown]
  - Rectal discharge [Unknown]
  - Drug ineffective [Unknown]
  - Product use issue [Unknown]
